FAERS Safety Report 7901514-X (Version None)
Quarter: 2011Q4

REPORT INFORMATION
  Report Type: 
  Country: None (occurrence: None)
  Receive Date: 20111108
  Receipt Date: 20111102
  Transmission Date: 20120403
  Serious: Yes (Death)
  Sender: FDA-Public Use
  Company Number: US-CELGENEUS-163-21880-11110631

PATIENT
  Sex: Male
  Weight: 172.52 kg

DRUGS (9)
  1. TAMSULOSIN ER [Concomitant]
     Dosage: .4 MILLIGRAM
     Route: 065
  2. TORSEMIDE [Concomitant]
     Dosage: 20 MILLIGRAM
     Route: 065
  3. LOVENOX [Concomitant]
     Dosage: 40 MG/0.4 ML
     Route: 065
  4. MORPHINE [Concomitant]
     Dosage: 15 MILLIGRAM
     Route: 065
  5. REVLIMID [Suspect]
     Indication: MULTIPLE MYELOMA
     Dosage: 15 MILLIGRAM
     Route: 048
     Dates: start: 20111001, end: 20111001
  6. VALACYCLOVIR [Concomitant]
     Dosage: 500 MILLIGRAM
     Route: 065
  7. COUMADIN [Concomitant]
     Dosage: 5 MILLIGRAM
     Route: 065
  8. DEXAMETHASONE [Concomitant]
     Dosage: 4 MILLIGRAM
     Route: 065
  9. PROTONIX [Concomitant]
     Dosage: 40 MILLIGRAM
     Route: 065

REACTIONS (1)
  - DEATH [None]
